FAERS Safety Report 7176957-5 (Version None)
Quarter: 2010Q4

REPORT INFORMATION
  Report Type: 
  Country: None (occurrence: None)
  Receive Date: 20101216
  Receipt Date: 20101216
  Transmission Date: 20110411
  Serious: Yes (Hospitalization)
  Sender: FDA-Public Use
  Company Number: None

PATIENT
  Age: 30 Year
  Sex: Male

DRUGS (1)
  1. LAMICTAL XR [Suspect]
     Indication: EPILEPSY
     Dosage: 25 MG DAILY PO
     Route: 048
     Dates: start: 20101129, end: 20101212

REACTIONS (5)
  - CHILLS [None]
  - LEUKOPENIA [None]
  - RASH [None]
  - THROMBOCYTOPENIA [None]
  - UNEVALUABLE EVENT [None]
